FAERS Safety Report 16939562 (Version 2)
Quarter: 2020Q1

REPORT INFORMATION
  Report Type: Spontaneous
  Country: None (occurrence: GR)
  Receive Date: 20191021
  Receipt Date: 20200109
  Transmission Date: 20200409
  Serious: Yes (Death, Hospitalization)
  Sender: FDA-Public Use
  Company Number: GR-ORION CORPORATION ORION PHARMA-ENTC2019-0270

PATIENT
  Age: 87 Year
  Sex: Female

DRUGS (5)
  1. CO-BENELDOPA [Suspect]
     Active Substance: BENSERAZIDE HYDROCHLORIDE\LEVODOPA
     Indication: AKINESIA
     Route: 048
  2. ENTACAPONE. [Suspect]
     Active Substance: ENTACAPONE
     Indication: AKINESIA
     Route: 048
  3. APOMORPHINE [Suspect]
     Active Substance: APOMORPHINE
     Indication: AKINESIA
     Dosage: INTERMITTENT
     Route: 058
  4. HYDROCORTISONE. [Suspect]
     Active Substance: HYDROCORTISONE
     Indication: AKINESIA
     Route: 042
  5. LEVODOPA-CARBIDOPA-ENTACAPONE [Suspect]
     Active Substance: CARBIDOPA\ENTACAPONE\LEVODOPA
     Indication: PARKINSON^S DISEASE
     Dosage: STRENGTH: (200 MG/50 MG/200 MG
     Route: 065

REACTIONS (5)
  - Hyperthermia [Fatal]
  - Malabsorption [Not Recovered/Not Resolved]
  - Akinesia [Fatal]
  - Cardio-respiratory distress [Fatal]
  - Gastric pneumatosis [Recovered/Resolved]
